FAERS Safety Report 5677338-3 (Version None)
Quarter: 2008Q1

REPORT INFORMATION
  Report Type: 
  Country: None (occurrence: None)
  Receive Date: 20080318
  Receipt Date: 20080311
  Transmission Date: 20080703
  Serious: Yes (Other)
  Sender: FDA-Public Use
  Company Number: 2008EU000518

PATIENT
  Age: 26 Year
  Sex: Female

DRUGS (2)
  1. VESICARE [Suspect]
     Indication: URINARY INCONTINENCE
     Dosage: 5 MG, /D, ORAL
     Route: 048
     Dates: start: 20071220, end: 20080212
  2. DESOGESTREL   (DESOGESTREL) [Concomitant]

REACTIONS (2)
  - DYSPNOEA [None]
  - PANIC REACTION [None]
